FAERS Safety Report 13100734 (Version 1)
Quarter: 2017Q1

REPORT INFORMATION
  Report Type: Report from Study
  Country: BR (occurrence: BR)
  Receive Date: 20170110
  Receipt Date: 20170110
  Transmission Date: 20170428
  Serious: Yes (Death)
  Sender: FDA-Public Use
  Company Number: PHHY2017BR002840

PATIENT
  Sex: Male
  Weight: 50 kg

DRUGS (2)
  1. OPTI FREE [Suspect]
     Active Substance: PANCRELIPASE\TYROSINE
     Indication: PRODUCT USED FOR UNKNOWN INDICATION
     Dosage: UNK
     Route: 065
  2. DIOVAN [Suspect]
     Active Substance: VALSARTAN
     Indication: DEMENTIA ALZHEIMER^S TYPE
     Dosage: 2 DF, QD (4 ? YEARS AGO)
     Route: 065
     Dates: end: 201507

REACTIONS (2)
  - Pneumonia [Fatal]
  - Product use issue [Unknown]
